FAERS Safety Report 23555383 (Version 1)
Quarter: 2024Q1

REPORT INFORMATION
  Report Type: Spontaneous
  Country: IS (occurrence: IS)
  Receive Date: 20240222
  Receipt Date: 20240222
  Transmission Date: 20240410
  Serious: Yes (Other)
  Sender: FDA-Public Use
  Company Number: IS-Ascend Therapeutics US, LLC-2153562

PATIENT
  Age: 6 Year
  Sex: Female

DRUGS (2)
  1. ESTROGEL [Suspect]
     Active Substance: ESTRADIOL
     Route: 065
  2. ESTRADIOL [Suspect]
     Active Substance: ESTRADIOL
     Route: 065

REACTIONS (6)
  - Oestrogenic effect [Unknown]
  - Accidental exposure to product by child [Unknown]
  - Breast enlargement [Unknown]
  - Mood swings [Unknown]
  - Vaginal discharge [Unknown]
  - Nipple pain [Unknown]
